FAERS Safety Report 6244146-4 (Version None)
Quarter: 2009Q2

REPORT INFORMATION
  Report Type: 
  Country: None (occurrence: None)
  Receive Date: 20090623
  Receipt Date: 20090623
  Transmission Date: 20091009
  Serious: Yes (Hospitalization)
  Sender: FDA-Public Use
  Company Number: None

PATIENT
  Age: 49 Year
  Sex: Male
  Weight: 79 kg

DRUGS (1)
  1. LITHIUM CARBONATE [Suspect]
     Dosage: 600 MG AT BEDTIME PO
     Route: 048
     Dates: start: 20031023, end: 20090621

REACTIONS (3)
  - CONFUSIONAL STATE [None]
  - DRUG LEVEL BELOW THERAPEUTIC [None]
  - RENAL FAILURE ACUTE [None]
